FAERS Safety Report 6236162-3 (Version None)
Quarter: 2009Q2

REPORT INFORMATION
  Report Type: 
  Country: None (occurrence: None)
  Receive Date: 20090617
  Receipt Date: 20080617
  Transmission Date: 20091009
  Serious: No
  Sender: FDA-Public Use
  Company Number: 276448

PATIENT
  Sex: Male

DRUGS (7)
  1. LEVEMIR [Suspect]
     Indication: DIABETES MELLITUS
     Dosage: QID, SUBCUTANEOUS
     Route: 058
  2. COREG [Concomitant]
  3. AVALIDE [Concomitant]
  4. CADUET (AMLODIPINE BESILATE, ATORVASTATIN CALCIUM) [Concomitant]
  5. ASPIRIN [Concomitant]
  6. METHYLDOPA [Concomitant]
  7. GLUCOPHAGE /00082701/ (METFORMIN) [Concomitant]

REACTIONS (1)
  - INJECTION SITE URTICARIA [None]
